FAERS Safety Report 18268414 (Version 9)
Quarter: 2022Q4

REPORT INFORMATION
  Report Type: Report from Study
  Country: US (occurrence: US)
  Receive Date: 20200915
  Receipt Date: 20221118
  Transmission Date: 20230113
  Serious: Yes (Hospitalization)
  Sender: FDA-Public Use
  Company Number: US-SHIRE-US202026434

PATIENT
  Age: 6 Year
  Sex: Male
  Weight: 25 kg

DRUGS (40)
  1. HUMAN IMMUNOGLOBULIN G [Suspect]
     Active Substance: HUMAN IMMUNOGLOBULIN G
     Indication: Immunodeficiency common variable
     Dosage: 5 GRAM, Q2WEEKS
     Route: 058
     Dates: start: 20170125
  2. HUMAN IMMUNOGLOBULIN G [Suspect]
     Active Substance: HUMAN IMMUNOGLOBULIN G
     Dosage: 5 GRAM, Q2WEEKS
     Route: 058
     Dates: start: 20170126
  3. HUMAN IMMUNOGLOBULIN G [Suspect]
     Active Substance: HUMAN IMMUNOGLOBULIN G
     Dosage: 5 GRAM, Q4WEEKS
     Route: 058
     Dates: start: 20170208
  4. GAMMAGARD LIQUID [Suspect]
     Active Substance: HUMAN IMMUNOGLOBULIN G
     Indication: Immunodeficiency common variable
     Dosage: 5 GRAM, Q4WEEKS
     Route: 058
     Dates: start: 20170308
  5. GAMMAGARD LIQUID [Suspect]
     Active Substance: HUMAN IMMUNOGLOBULIN G
     Dosage: 10 GRAM, Q4WEEKS
     Route: 042
     Dates: start: 20210915
  6. LIDOCAINE [Suspect]
     Active Substance: LIDOCAINE
     Indication: Product used for unknown indication
     Route: 065
  7. DIPHENHYDRAMINE [Concomitant]
     Active Substance: DIPHENHYDRAMINE
     Indication: Product used for unknown indication
     Dosage: UNK
  8. IBUPROFEN [Concomitant]
     Active Substance: IBUPROFEN
     Indication: Product used for unknown indication
     Dosage: UNK
  9. PRILOCAINE [Concomitant]
     Active Substance: PRILOCAINE
     Indication: Product used for unknown indication
     Dosage: UNK
  10. EPINEPHRINE [Concomitant]
     Active Substance: EPINEPHRINE
     Indication: Product used for unknown indication
     Dosage: UNK
  11. ZYRTEC [Concomitant]
     Active Substance: CETIRIZINE HYDROCHLORIDE
     Indication: Product used for unknown indication
     Dosage: UNK
  12. CLONAZEPAM [Concomitant]
     Active Substance: CLONAZEPAM
     Indication: Product used for unknown indication
     Dosage: UNK
  13. VIMPAT [Concomitant]
     Active Substance: LACOSAMIDE
     Indication: Product used for unknown indication
     Dosage: UNK
  14. FLOVENT [Concomitant]
     Active Substance: FLUTICASONE PROPIONATE
     Indication: Product used for unknown indication
     Dosage: UNK
  15. FAMOTIDINE [Concomitant]
     Active Substance: FAMOTIDINE
     Indication: Product used for unknown indication
     Dosage: UNK
  16. ONFI [Concomitant]
     Active Substance: CLOBAZAM
     Indication: Product used for unknown indication
     Dosage: UNK
  17. OXYCODONE [Concomitant]
     Active Substance: OXYCODONE
     Indication: Product used for unknown indication
     Dosage: UNK
  18. FLONASE [Concomitant]
     Active Substance: FLUTICASONE PROPIONATE
     Indication: Product used for unknown indication
     Dosage: UNK
  19. NYSTATIN [Concomitant]
     Active Substance: NYSTATIN
     Indication: Product used for unknown indication
     Dosage: UNK
  20. ALBUTEROL [Concomitant]
     Active Substance: ALBUTEROL
     Indication: Product used for unknown indication
     Dosage: UNK
  21. GLUCAGEN [Concomitant]
     Active Substance: GLUCAGON HYDROCHLORIDE
     Indication: Product used for unknown indication
     Dosage: UNK
  22. VITAMIN D3 [Concomitant]
     Active Substance: CHOLECALCIFEROL
     Indication: Product used for unknown indication
     Dosage: UNK
  23. TRIAMCINOLONE [Concomitant]
     Active Substance: TRIAMCINOLONE
     Indication: Product used for unknown indication
     Dosage: UNK
  24. LEVOCARNITINE [Concomitant]
     Active Substance: LEVOCARNITINE
     Indication: Product used for unknown indication
     Dosage: UNK
  25. DIASTAT [Concomitant]
     Active Substance: DIAZEPAM
     Indication: Product used for unknown indication
     Dosage: UNK
  26. OXYGEN [Concomitant]
     Active Substance: OXYGEN
     Indication: Product used for unknown indication
     Dosage: UNK
  27. ACETAMINOPHEN [Concomitant]
     Active Substance: ACETAMINOPHEN
     Indication: Product used for unknown indication
     Dosage: UNK
  28. CETIRIZINE [Concomitant]
     Active Substance: CETIRIZINE HYDROCHLORIDE
  29. MELATONIN [Concomitant]
     Active Substance: MELATONIN
  30. METHYLPHENIDATE [Concomitant]
     Active Substance: METHYLPHENIDATE
  31. CLONIDINE [Concomitant]
     Active Substance: CLONIDINE
  32. GUANFACINE [Concomitant]
     Active Substance: GUANFACINE
  33. FLUTICASONE [Concomitant]
     Active Substance: FLUTICASONE
  34. ALOE [Concomitant]
     Active Substance: ALOE
  35. SODIUM CHLORIDE [Concomitant]
     Active Substance: SODIUM CHLORIDE
  36. ACETONIDE DE FLUCLOROLONE [Concomitant]
  37. ALBUTEROL SULFATE [Concomitant]
     Active Substance: ALBUTEROL SULFATE
  38. TRIAMCINOLONE ACETONIDE [Concomitant]
     Active Substance: TRIAMCINOLONE ACETONIDE
  39. XANAX [Concomitant]
     Active Substance: ALPRAZOLAM
  40. LORAZEPAM [Concomitant]
     Active Substance: LORAZEPAM

REACTIONS (10)
  - Hospitalisation [Unknown]
  - Peripheral swelling [Unknown]
  - Infusion site irritation [Unknown]
  - Dysphonia [Unknown]
  - Sinusitis [Unknown]
  - Nasopharyngitis [Unknown]
  - COVID-19 [Unknown]
  - Diarrhoea [Recovering/Resolving]
  - Rash [Unknown]
  - Respiratory tract infection [Unknown]

NARRATIVE: CASE EVENT DATE: 20200815
